FAERS Safety Report 4393930-0 (Version None)
Quarter: 2004Q3

REPORT INFORMATION
  Report Type: 
  Country: None (occurrence: None)
  Receive Date: 20040702
  Receipt Date: 20040621
  Transmission Date: 20050211
  Serious: Yes (Hospitalization)
  Sender: FDA-Public Use
  Company Number: 2004-BP-04875BP

PATIENT
  Age: 58 Year

DRUGS (7)
  1. MIRAPEX [Suspect]
     Indication: PARKINSON'S DISEASE
     Dosage: DOSE INCREASED), PO
     Route: 048
  2. VERAPAMIL [Concomitant]
  3. PREVACID [Concomitant]
  4. CARBIDOPA AND LEVODOPA [Concomitant]
  5. POTASSIUM CHLORIDE [Concomitant]
  6. LASIX [Concomitant]
  7. FLOMAX [Concomitant]

REACTIONS (2)
  - DYSSTASIA [None]
  - FATIGUE [None]
